FAERS Safety Report 4403885-8 (Version None)
Quarter: 2004Q3

REPORT INFORMATION
  Report Type: 
  Country: None (occurrence: None)
  Receive Date: 20040719
  Receipt Date: 20040712
  Transmission Date: 20050211
  Serious: No
  Sender: FDA-Public Use
  Company Number: 2004-06-2165

PATIENT
  Age: 88 Year
  Sex: Female
  Weight: 72 kg

DRUGS (4)
  1. AERIUS (DESLORATADINE) TABLETS  'LIKE CLARINEX' [Suspect]
     Indication: SENILE PRURITUS
     Dosage: 5 MG QD ORAL
     Route: 048
     Dates: start: 20040615, end: 20040627
  2. RIFAMPICIN OPHTHALMIC SOLUTION [Suspect]
     Dosage: OPHTHALMIC
     Route: 047
     Dates: start: 20040615, end: 20040627
  3. COVERSYL [Concomitant]
  4. FUROSEMIDE [Concomitant]

REACTIONS (1)
  - ACUTE GENERALISED EXANTHEMATOUS PUSTULOSIS [None]
